FAERS Safety Report 11827568 (Version 2)
Quarter: 2015Q4

REPORT INFORMATION
  Report Type: Spontaneous
  Country: IT (occurrence: IT)
  Receive Date: 20151211
  Receipt Date: 20151215
  Transmission Date: 20160305
  Serious: Yes (Hospitalization)
  Sender: FDA-Public Use
  Company Number: IT-ABBVIE-15P-083-1514855-00

PATIENT
  Age: 69 Year
  Sex: Male
  Weight: 84 kg

DRUGS (7)
  1. EXVIERA [Suspect]
     Active Substance: DASABUVIR
     Indication: HEPATITIS C
     Route: 048
     Dates: start: 20150907, end: 20151002
  2. RIBAVIRIN. [Concomitant]
     Active Substance: RIBAVIRIN
     Indication: HEPATITIS C
     Dosage: 6 UNIT
     Route: 048
     Dates: start: 20150907, end: 20151002
  3. LASIX [Concomitant]
     Active Substance: FUROSEMIDE
     Indication: PRODUCT USED FOR UNKNOWN INDICATION
  4. URSOBIL [Concomitant]
     Indication: PRODUCT USED FOR UNKNOWN INDICATION
  5. VIEKIRAX [Suspect]
     Active Substance: OMBITASVIR\PARITAPREVIR\RITONAVIR
     Indication: HEPATITIS C
     Route: 048
     Dates: start: 20150907, end: 20151002
  6. LUVION [Concomitant]
     Active Substance: CANRENONE
     Indication: PRODUCT USED FOR UNKNOWN INDICATION
  7. PANTORC [Concomitant]
     Active Substance: PANTOPRAZOLE SODIUM
     Indication: PRODUCT USED FOR UNKNOWN INDICATION

REACTIONS (3)
  - Peritonitis bacterial [Recovering/Resolving]
  - Hyperbilirubinaemia [Recovering/Resolving]
  - Ascites [Recovering/Resolving]

NARRATIVE: CASE EVENT DATE: 20150929
